FAERS Safety Report 4912785-6 (Version None)
Quarter: 2006Q1

REPORT INFORMATION
  Report Type: 
  Country: None (occurrence: None)
  Receive Date: 20060215
  Receipt Date: 20051216
  Transmission Date: 20060701
  Serious: Yes (Death, Life-Threatening, Hospitalization)
  Sender: FDA-Public Use
  Company Number: CA-ROCHE-428832

PATIENT
  Age: 73 Year
  Sex: Female
  Weight: 61.7 kg

DRUGS (5)
  1. CAPECITABINE [Suspect]
     Dosage: 1650 MG TWICE DAILY FOR FOURTEEN DAYS EVERY THREE WEEKS.
     Route: 048
     Dates: start: 20051129, end: 20051214
  2. BEVACIZUMAB [Suspect]
     Route: 042
     Dates: start: 20051129, end: 20051214
  3. OXALIPLATIN [Suspect]
     Route: 042
     Dates: start: 20051129, end: 20051214
  4. ZOFRAN [Concomitant]
     Dates: start: 20051129
  5. PROCHLORPERAZINE [Concomitant]
     Dates: start: 20051129

REACTIONS (7)
  - COLITIS [None]
  - DEATH [None]
  - DEHYDRATION [None]
  - HAEMOGLOBIN DECREASED [None]
  - ISCHAEMIC STROKE [None]
  - OESOPHAGITIS [None]
  - SEPTIC SHOCK [None]
